FAERS Safety Report 20561499 (Version 1)
Quarter: 2022Q1

REPORT INFORMATION
  Report Type: Spontaneous
  Country: DE (occurrence: DE)
  Receive Date: 20220307
  Receipt Date: 20220307
  Transmission Date: 20220423
  Serious: Yes (Other)
  Sender: FDA-Public Use
  Company Number: DE-002147023-NVSC2020DE056550

PATIENT
  Age: 35 Year
  Sex: Female
  Weight: 60 kg

DRUGS (29)
  1. CIPROFLOXACIN [Suspect]
     Active Substance: CIPROFLOXACIN
     Indication: Product used for unknown indication
     Dosage: UNK
     Route: 065
  2. ESCITALOPRAM [Suspect]
     Active Substance: ESCITALOPRAM OXALATE
     Indication: Depression
     Dosage: 20 MG, QD
     Route: 048
     Dates: start: 20191120
  3. ZOLPIDEM [Suspect]
     Active Substance: ZOLPIDEM TARTRATE
     Indication: Sleep disorder
     Dosage: 10 MG (ON DEMAND)
     Route: 048
     Dates: start: 20191120, end: 20200309
  4. ERENUMAB [Suspect]
     Active Substance: ERENUMAB
     Indication: Product used for unknown indication
     Dosage: 140 MG
     Route: 065
     Dates: start: 20200715, end: 20200715
  5. ERENUMAB [Suspect]
     Active Substance: ERENUMAB
     Indication: Product used for unknown indication
     Dosage: 140 MG
     Route: 065
     Dates: start: 20210618, end: 20210618
  6. ERENUMAB [Suspect]
     Active Substance: ERENUMAB
     Indication: Product used for unknown indication
     Dosage: 140 MG
     Route: 065
     Dates: start: 20200520, end: 20200520
  7. ERENUMAB [Suspect]
     Active Substance: ERENUMAB
     Indication: Product used for unknown indication
     Dosage: 140 MG
     Route: 065
     Dates: start: 20211115, end: 20211115
  8. ERENUMAB [Suspect]
     Active Substance: ERENUMAB
     Indication: Product used for unknown indication
     Dosage: 140 MG
     Route: 065
     Dates: start: 20210917, end: 20210917
  9. ERENUMAB [Suspect]
     Active Substance: ERENUMAB
     Indication: Product used for unknown indication
     Dosage: 140 MG
     Route: 065
     Dates: start: 20200318, end: 20200318
  10. ERENUMAB [Suspect]
     Active Substance: ERENUMAB
     Indication: Product used for unknown indication
     Dosage: 140 MG
     Route: 065
     Dates: start: 20201019, end: 20201019
  11. ERENUMAB [Suspect]
     Active Substance: ERENUMAB
     Indication: Product used for unknown indication
     Dosage: 140 MG
     Route: 065
     Dates: start: 20210119, end: 20210119
  12. ERENUMAB [Suspect]
     Active Substance: ERENUMAB
     Indication: Product used for unknown indication
     Dosage: 140 MG
     Route: 065
     Dates: start: 20210718, end: 20210718
  13. ERENUMAB [Suspect]
     Active Substance: ERENUMAB
     Indication: Product used for unknown indication
     Dosage: 140 MG
     Route: 065
     Dates: start: 20211010, end: 20211010
  14. ERENUMAB [Suspect]
     Active Substance: ERENUMAB
     Indication: Product used for unknown indication
     Dosage: 140 MG
     Route: 065
     Dates: start: 20200218
  15. ERENUMAB [Suspect]
     Active Substance: ERENUMAB
     Indication: Product used for unknown indication
     Dosage: 140 MG
     Route: 065
     Dates: start: 20201121, end: 20201121
  16. ERENUMAB [Suspect]
     Active Substance: ERENUMAB
     Indication: Product used for unknown indication
     Dosage: 140 MG
     Route: 065
     Dates: start: 20200422, end: 20200422
  17. ERENUMAB [Suspect]
     Active Substance: ERENUMAB
     Indication: Product used for unknown indication
     Dosage: 140 MG
     Route: 065
     Dates: start: 20201216, end: 20201216
  18. ERENUMAB [Suspect]
     Active Substance: ERENUMAB
     Indication: Product used for unknown indication
     Dosage: 140 MG
     Route: 065
     Dates: start: 20200817, end: 20200817
  19. ERENUMAB [Suspect]
     Active Substance: ERENUMAB
     Indication: Product used for unknown indication
     Dosage: 140 MG
     Route: 065
     Dates: start: 20210517, end: 20210517
  20. ERENUMAB [Suspect]
     Active Substance: ERENUMAB
     Indication: Product used for unknown indication
     Dosage: 140 MG
     Route: 065
     Dates: start: 20200617, end: 20200617
  21. ERENUMAB [Suspect]
     Active Substance: ERENUMAB
     Indication: Product used for unknown indication
     Dosage: 140 MG
     Route: 065
     Dates: start: 20210219, end: 20210219
  22. ERENUMAB [Suspect]
     Active Substance: ERENUMAB
     Indication: Product used for unknown indication
     Dosage: 140 MG
     Route: 065
     Dates: start: 20211213, end: 20211213
  23. ERENUMAB [Suspect]
     Active Substance: ERENUMAB
     Indication: Product used for unknown indication
     Dosage: 140 MG
     Route: 065
     Dates: start: 20200917, end: 20200917
  24. ERENUMAB [Suspect]
     Active Substance: ERENUMAB
     Indication: Product used for unknown indication
     Dosage: 140 MG
     Route: 065
     Dates: start: 20210818, end: 20210818
  25. ERENUMAB [Suspect]
     Active Substance: ERENUMAB
     Indication: Product used for unknown indication
     Dosage: 140 MG
     Route: 065
     Dates: start: 20210318, end: 20210318
  26. ERENUMAB [Suspect]
     Active Substance: ERENUMAB
     Indication: Product used for unknown indication
     Dosage: 70 MG
     Route: 065
     Dates: start: 20191202, end: 20191202
  27. ERENUMAB [Suspect]
     Active Substance: ERENUMAB
     Indication: Product used for unknown indication
     Dosage: 70 MG
     Route: 065
     Dates: start: 20200110, end: 20200110
  28. ERENUMAB [Suspect]
     Active Substance: ERENUMAB
     Indication: Product used for unknown indication
     Dosage: 140 MG
     Route: 065
     Dates: start: 20210419, end: 20210419
  29. MAGNESIUM [Concomitant]
     Active Substance: MAGNESIUM
     Indication: Migraine
     Dosage: 300 MG, BID
     Route: 065
     Dates: start: 20201204, end: 20201211

REACTIONS (3)
  - Respiratory tract infection [Recovered/Resolved]
  - Otitis media [Recovered/Resolved]
  - Drug ineffective [Unknown]

NARRATIVE: CASE EVENT DATE: 20200115
